FAERS Safety Report 4617180-5 (Version None)
Quarter: 2005Q1

REPORT INFORMATION
  Report Type: 
  Country: None (occurrence: None)
  Receive Date: 20050323
  Receipt Date: 20050317
  Transmission Date: 20050727
  Serious: Yes (Hospitalization)
  Sender: FDA-Public Use
  Company Number: FR-GLAXOSMITHKLINE-B0375396A

PATIENT
  Age: 44 Year
  Sex: Female

DRUGS (4)
  1. ZINNAT INJECTABLE [Suspect]
     Indication: ANTIBACTERIAL PROPHYLAXIS
     Dosage: 250MG SINGLE DOSE
     Route: 042
     Dates: start: 20040517, end: 20040517
  2. DIPRIVAN [Concomitant]
     Dosage: 200MG SINGLE DOSE
     Route: 042
     Dates: start: 20040517, end: 20040517
  3. SUFENTA [Concomitant]
     Dosage: 50UG SINGLE DOSE
     Route: 042
     Dates: start: 20040517, end: 20040517
  4. NIMBEX [Concomitant]
     Dosage: 5MG SINGLE DOSE
     Route: 042
     Dates: start: 20040517, end: 20040517

REACTIONS (4)
  - ANAPHYLACTIC SHOCK [None]
  - BRONCHOSPASM [None]
  - HYPOTENSION [None]
  - TACHYCARDIA [None]
